FAERS Safety Report 15044841 (Version 3)
Quarter: 2018Q4

REPORT INFORMATION
  Report Type: Spontaneous
  Country: US (occurrence: US)
  Receive Date: 20180621
  Receipt Date: 20181218
  Transmission Date: 20190204
  Serious: Yes (Disabling, Other)
  Sender: FDA-Public Use
  Company Number: US-OTSUKA-2018_015535

PATIENT
  Sex: Male

DRUGS (7)
  1. ABILIFY [Suspect]
     Active Substance: ARIPIPRAZOLE
     Indication: ANXIETY
  2. ARIPIPRAZOLE. [Concomitant]
     Active Substance: ARIPIPRAZOLE
     Indication: PRODUCT USED FOR UNKNOWN INDICATION
     Dosage: UNK
     Route: 065
     Dates: start: 20160208, end: 20160801
  3. ABILIFY [Suspect]
     Active Substance: ARIPIPRAZOLE
     Indication: DEPRESSION
  4. TRUVADA [Concomitant]
     Active Substance: EMTRICITABINE\TENOFOVIR DISOPROXIL FUMARATE
     Indication: PRODUCT USED FOR UNKNOWN INDICATION
     Dosage: 1 DF, QD
     Route: 048
  5. BACTRIM [Concomitant]
     Active Substance: SULFAMETHOXAZOLE\TRIMETHOPRIM
     Indication: PRODUCT USED FOR UNKNOWN INDICATION
     Dosage: 2 DF, BID (SULFAMETHOXAZOLE 800 MG, TRIMETHOPRIM 160 MG)
     Route: 048
  6. DOLUTEGRAVIR [Concomitant]
     Active Substance: DOLUTEGRAVIR
     Indication: PRODUCT USED FOR UNKNOWN INDICATION
     Dosage: 50 MG, QD
     Route: 048
  7. ABILIFY [Suspect]
     Active Substance: ARIPIPRAZOLE
     Indication: MAJOR DEPRESSION
     Dosage: 10MG}20MG, QD
     Route: 065
     Dates: start: 201107, end: 201607

REACTIONS (24)
  - Anhedonia [Unknown]
  - Sexually inappropriate behaviour [Recovered/Resolved]
  - Anal haemorrhage [Unknown]
  - Fear [Unknown]
  - Compulsive shopping [Recovered/Resolved]
  - Social problem [Unknown]
  - Pain [Unknown]
  - Personal relationship issue [Unknown]
  - Injury [Unknown]
  - Sexually transmitted disease [Unknown]
  - Suicide attempt [Recovered/Resolved]
  - Ear injury [Unknown]
  - Back pain [Unknown]
  - Gambling disorder [Recovering/Resolving]
  - Condition aggravated [Recovering/Resolving]
  - Pruritus [Unknown]
  - Disability [Unknown]
  - Mental impairment [Unknown]
  - Suicidal ideation [Recovered/Resolved]
  - Compulsive sexual behaviour [Recovered/Resolved]
  - Emotional distress [Unknown]
  - Anxiety [Unknown]
  - Product use in unapproved indication [Unknown]
  - Economic problem [Unknown]

NARRATIVE: CASE EVENT DATE: 201406
